FAERS Safety Report 5699408-6 (Version None)
Quarter: 2008Q2

REPORT INFORMATION
  Report Type: 
  Country: None (occurrence: None)
  Receive Date: 20080404
  Receipt Date: 20080326
  Transmission Date: 20081010
  Serious: Yes (Hospitalization)
  Sender: FDA-Public Use
  Company Number: 2008PV034134

PATIENT
  Age: 63 Year
  Sex: Female
  Weight: 139.2543 kg

DRUGS (12)
  1. SYMLIN [Suspect]
     Indication: TYPE 2 DIABETES MELLITUS
     Dosage: 140 MCG; BID; SC; 120 MCG;  BID; SC; 60 MCG; BID; SC
     Route: 058
     Dates: start: 20070604, end: 20070608
  2. SYMLIN [Suspect]
     Indication: TYPE 2 DIABETES MELLITUS
     Dosage: 140 MCG; BID; SC; 120 MCG;  BID; SC; 60 MCG; BID; SC
     Route: 058
     Dates: start: 20070609, end: 20071105
  3. SYMLIN [Suspect]
     Indication: TYPE 2 DIABETES MELLITUS
     Dosage: 140 MCG; BID; SC; 120 MCG;  BID; SC; 60 MCG; BID; SC
     Route: 058
     Dates: start: 20071106
  4. ACTOS [Suspect]
     Indication: TYPE 2 DIABETES MELLITUS
     Dates: end: 20080101
  5. HUMALOG [Concomitant]
  6. DIOVAN HCT [Concomitant]
  7. FUROSEMIDE [Concomitant]
  8. PRILOSEC [Concomitant]
  9. TOPROL-XL [Concomitant]
  10. VYTORIN [Concomitant]
  11. ELAVIL [Concomitant]
  12. CLONAZEPAM [Concomitant]

REACTIONS (3)
  - ASCITES [None]
  - LIVEDO RETICULARIS [None]
  - RIGHT VENTRICULAR FAILURE [None]
